FAERS Safety Report 17720160 (Version 1)
Quarter: 2020Q2

REPORT INFORMATION
  Report Type: Spontaneous
  Country: JP (occurrence: JP)
  Receive Date: 20200428
  Receipt Date: 20200428
  Transmission Date: 20200714
  Serious: Yes (Other)
  Sender: FDA-Public Use
  Company Number: JP-PFIZER INC-2020164984

PATIENT
  Age: 8 Decade
  Sex: Male
  Weight: 67.5 kg

DRUGS (5)
  1. BAYASPIRIN [Concomitant]
     Active Substance: ASPIRIN
     Dosage: UNK
  2. NEXIUM [Concomitant]
     Active Substance: ESOMEPRAZOLE MAGNESIUM
     Dosage: UNK
  3. CEFTRIAXONE SODIUM. [Suspect]
     Active Substance: CEFTRIAXONE SODIUM
     Dosage: 2 G
     Dates: start: 20190603
  4. CLOPIDOGREL [CLOPIDOGREL BISULFATE] [Concomitant]
     Active Substance: CLOPIDOGREL BISULFATE
     Dosage: UNK
  5. GENINAX [Suspect]
     Active Substance: GARENOXACIN MESYLATE
     Dosage: 400 MG
     Dates: start: 20190603

REACTIONS (5)
  - Respiratory failure [Unknown]
  - Pulmonary oedema [Unknown]
  - Pneumonia [Unknown]
  - Rash [Unknown]
  - Psychomotor hyperactivity [Unknown]

NARRATIVE: CASE EVENT DATE: 20190605
